FAERS Safety Report 6643890-4 (Version None)
Quarter: 2010Q1

REPORT INFORMATION
  Report Type: 
  Country: None (occurrence: None)
  Receive Date: 20100322
  Receipt Date: 20100309
  Transmission Date: 20100710
  Serious: Yes (Hospitalization)
  Sender: FDA-Public Use
  Company Number: US-ELI_LILLY_AND_COMPANY-US201003002420

PATIENT
  Sex: Female

DRUGS (1)
  1. BYETTA [Suspect]
     Indication: TYPE 2 DIABETES MELLITUS
     Dosage: 10 UG, 2/D
     Route: 058

REACTIONS (3)
  - CHOLECYSTITIS INFECTIVE [None]
  - DISCOMFORT [None]
  - MALAISE [None]
